FAERS Safety Report 12189999 (Version 1)
Quarter: 2016Q1

REPORT INFORMATION
  Report Type: Spontaneous
  Country: US (occurrence: None)
  Receive Date: 20160317
  Receipt Date: 20160317
  Transmission Date: 20160526
  Serious: Yes (Other)
  Sender: FDA-Public Use
  Company Number: None

PATIENT
  Age: 55 Year
  Sex: Female

DRUGS (1)
  1. MYCOPHENOLATE [Suspect]
     Active Substance: MYCOPHENOLIC ACID
     Indication: SCLERODERMA
     Dosage: 3AM/2NOON/3PM
     Route: 048
     Dates: start: 201409

REACTIONS (3)
  - Therapy change [None]
  - Anal incontinence [None]
  - Diarrhoea [None]

NARRATIVE: CASE EVENT DATE: 20160215
